FAERS Safety Report 8261004-4 (Version None)
Quarter: 2012Q2

REPORT INFORMATION
  Report Type: 
  Country: None (occurrence: None)
  Receive Date: 20120405
  Receipt Date: 20120330
  Transmission Date: 20120825
  Serious: No
  Sender: FDA-Public Use
  Company Number: US-PFIZER INC-2012074830

PATIENT
  Sex: Male
  Weight: 111 kg

DRUGS (9)
  1. CO-Q-10 [Interacting]
     Indication: CARDIAC ENZYMES
     Dosage: 200 MG, DAILY
     Dates: start: 20120301, end: 20120314
  2. MULTI-VITAMINS [Concomitant]
     Indication: ROUTINE HEALTH MAINTENANCE
     Dosage: UNK
  3. FISH OIL [Concomitant]
     Indication: ROUTINE HEALTH MAINTENANCE
     Dosage: 1200 MG, DAILY
  4. VIAGRA [Interacting]
     Indication: PENILE DISCHARGE
  5. LIPITOR [Interacting]
     Indication: BLOOD CHOLESTEROL ABNORMAL
     Dosage: SPLITTING 10MG IN TO HALF
     Route: 048
  6. NEXIUM [Concomitant]
     Indication: GASTROOESOPHAGEAL REFLUX DISEASE
     Dosage: 40 MG, DAILY
  7. VIAGRA [Suspect]
     Indication: ERECTILE DYSFUNCTION
     Dosage: 100 MG, AS NEEDED
     Route: 048
     Dates: end: 20120313
  8. ASCORBIC ACID [Concomitant]
     Dosage: 500 MG, DAILY
  9. ACETYLSALICYLIC ACID [Concomitant]
     Dosage: 81 MG, DAILY

REACTIONS (4)
  - CHILLS [None]
  - BLOOD PRESSURE DECREASED [None]
  - DRUG INTERACTION [None]
  - TREMOR [None]
